FAERS Safety Report 8413773-8 (Version None)
Quarter: 2012Q2

REPORT INFORMATION
  Report Type: 
  Country: None (occurrence: None)
  Receive Date: 20120605
  Receipt Date: 20120521
  Transmission Date: 20120825
  Serious: Yes (Other)
  Sender: FDA-Public Use
  Company Number: US-ROCHE-1073717

PATIENT

DRUGS (5)
  1. MABTHERA [Suspect]
     Dosage: DAY 1 AND ANOTHER ON DAY 7, 8, OR 9
  2. MABTHERA [Suspect]
     Dosage: MAINTENANCE  DOSE: 4 DOSES
  3. MITOXANTRONE HYDROCHLORIDE [Suspect]
     Indication: LYMPHOMA
     Dosage: ON DAY 1
     Route: 042
  4. FLUDARABINE PHOSPHATE [Suspect]
     Indication: LYMPHOMA
     Dosage: ON DAYS 1 THROUGH 3
  5. MABTHERA [Suspect]
     Indication: LYMPHOMA
     Dosage: ON DAY 1
     Route: 042

REACTIONS (5)
  - THROMBOCYTOPENIA [None]
  - ACUTE MYELOID LEUKAEMIA [None]
  - CELLULITIS [None]
  - MYELODYSPLASTIC SYNDROME [None]
  - NEUTROPENIA [None]
